FAERS Safety Report 13949962 (Version 1)
Quarter: 2017Q3

REPORT INFORMATION
  Report Type: Spontaneous
  Country: US (occurrence: US)
  Receive Date: 20170908
  Receipt Date: 20170908
  Transmission Date: 20171128
  Serious: No
  Sender: FDA-Public Use
  Company Number: US-ROCHE-1134752

PATIENT
  Sex: Female

DRUGS (1)
  1. RITUXAN [Suspect]
     Active Substance: RITUXIMAB
     Indication: HAIRY CELL LEUKAEMIA
     Route: 065

REACTIONS (8)
  - Arthralgia [Unknown]
  - Constipation [Unknown]
  - Headache [Unknown]
  - Chest discomfort [Unknown]
  - Fatigue [Unknown]
  - Erythema [Unknown]
  - Nausea [Unknown]
  - Abdominal pain upper [Unknown]
